FAERS Safety Report 5936186-7 (Version None)
Quarter: 2008Q4

REPORT INFORMATION
  Report Type: 
  Country: None (occurrence: None)
  Receive Date: 20081030
  Receipt Date: 20081020
  Transmission Date: 20090506
  Serious: Yes (Hospitalization, Other)
  Sender: FDA-Public Use
  Company Number: BR-PFIZER INC-2008088998

PATIENT
  Sex: Male

DRUGS (1)
  1. CELEBRA [Suspect]
     Indication: MYALGIA
     Route: 048
     Dates: start: 20080101

REACTIONS (10)
  - BLINDNESS [None]
  - COMA [None]
  - CONVULSION [None]
  - DRUG TOXICITY [None]
  - HYPERSENSITIVITY [None]
  - PYREXIA [None]
  - RENAL FAILURE [None]
  - SKIN EXFOLIATION [None]
  - SKIN ODOUR ABNORMAL [None]
  - SWELLING [None]
